FAERS Safety Report 5834612-5 (Version None)
Quarter: 2008Q3

REPORT INFORMATION
  Report Type: 
  Country: None (occurrence: None)
  Receive Date: 20080805
  Receipt Date: 20080724
  Transmission Date: 20090109
  Serious: Yes (Other)
  Sender: FDA-Public Use
  Company Number: US-ELI_LILLY_AND_COMPANY-US200807005131

PATIENT
  Sex: Female

DRUGS (4)
  1. STRATTERA [Suspect]
     Dosage: 180 MG, UNK
  2. STRATTERA [Suspect]
     Dosage: 180 MG, UNK
     Dates: start: 20020101
  3. STRATTERA [Suspect]
     Dosage: 40 MG, UNK
  4. ADDERALL 10 [Concomitant]

REACTIONS (16)
  - ARTHRALGIA [None]
  - AUTOIMMUNE DISORDER [None]
  - COELIAC DISEASE [None]
  - CONNECTIVE TISSUE DISORDER [None]
  - CONSTIPATION [None]
  - DRY EYE [None]
  - DYSPNOEA [None]
  - DYSURIA [None]
  - HEARING IMPAIRED [None]
  - HYPERSENSITIVITY [None]
  - NAUSEA [None]
  - OEDEMA PERIPHERAL [None]
  - OVERDOSE [None]
  - UNEMPLOYMENT [None]
  - VOMITING [None]
  - WEIGHT INCREASED [None]
